FAERS Safety Report 24167963 (Version 3)
Quarter: 2024Q3

REPORT INFORMATION
  Report Type: Spontaneous
  Country: US (occurrence: US)
  Receive Date: 20240802
  Receipt Date: 20240908
  Transmission Date: 20241016
  Serious: Yes (Hospitalization, Other)
  Sender: BRISTOL MYERS SQUIBB
  Company Number: US-BRISTOL-MYERS SQUIBB COMPANY-2024-121465

PATIENT
  Age: 67 Year
  Sex: Female

DRUGS (1)
  1. ORENCIA [Suspect]
     Active Substance: ABATACEPT
     Indication: Product used for unknown indication
     Dosage: DOSE: 125 MG/ML, FREQUENCY: INJECT 125MG SUBCUTANEOUSLY ONCE A WEEK
     Route: 058

REACTIONS (6)
  - Malaise [Unknown]
  - Haemorrhage [Unknown]
  - Feeling abnormal [Unknown]
  - Chest discomfort [Unknown]
  - Systemic lupus erythematosus [Recovering/Resolving]
  - Chronic cutaneous lupus erythematosus [Recovering/Resolving]

NARRATIVE: CASE EVENT DATE: 20240725
